FAERS Safety Report 7035257-4 (Version None)
Quarter: 2010Q4

REPORT INFORMATION
  Report Type: 
  Country: None (occurrence: None)
  Receive Date: 20101008
  Receipt Date: 20101005
  Transmission Date: 20110411
  Serious: Yes (Other)
  Sender: FDA-Public Use
  Company Number: A0870429A

PATIENT
  Sex: Male
  Weight: 307 kg

DRUGS (4)
  1. AVANDIA [Suspect]
     Route: 048
     Dates: start: 20010101, end: 20060101
  2. GLYBURIDE [Concomitant]
  3. METFORMIN [Concomitant]
  4. COUMADIN [Concomitant]
     Indication: PROPHYLAXIS

REACTIONS (4)
  - ASTHENIA [None]
  - ATRIAL FIBRILLATION [None]
  - CHEST PAIN [None]
  - DYSPNOEA [None]
